FAERS Safety Report 10200216 (Version 2)
Quarter: 2014Q3

REPORT INFORMATION
  Report Type: Spontaneous
  Country: FI (occurrence: FI)
  Receive Date: 20140527
  Receipt Date: 20140820
  Transmission Date: 20150326
  Serious: Yes (Death, Hospitalization, Other)
  Sender: FDA-Public Use
  Company Number: FI-BAXTER-2014BAX025746

PATIENT
  Age: 60 Year
  Sex: Female

DRUGS (13)
  1. FLUOROURACIL. [Suspect]
     Active Substance: FLUOROURACIL
     Indication: HER-2 POSITIVE BREAST CANCER
     Route: 042
     Dates: start: 20120409
  2. EPIRUBICIN [Suspect]
     Active Substance: EPIRUBICIN
     Route: 065
     Dates: start: 20140319
  3. GRANISETRON [Concomitant]
     Active Substance: GRANISETRON
     Indication: HER-2 POSITIVE BREAST CANCER
     Route: 042
     Dates: start: 20140409, end: 20140409
  4. FLUOROURACIL. [Suspect]
     Active Substance: FLUOROURACIL
     Route: 065
     Dates: start: 20140319
  5. SENDOXAN 1000 MG INJEKTIOKUIVA-AINE, LIUOSTA VARTEN [Suspect]
     Active Substance: CYCLOPHOSPHAMIDE
     Route: 065
     Dates: start: 20140319
  6. SENDOXAN 1000 MG INJEKTIOKUIVA-AINE, LIUOSTA VARTEN [Suspect]
     Active Substance: CYCLOPHOSPHAMIDE
     Route: 042
     Dates: start: 20140409, end: 20140409
  7. EPIRUBICIN [Suspect]
     Active Substance: EPIRUBICIN
     Indication: HER-2 POSITIVE BREAST CANCER
     Route: 042
     Dates: start: 20120409
  8. HERCEPTIN [Suspect]
     Active Substance: TRASTUZUMAB
     Indication: HER-2 POSITIVE BREAST CANCER
     Route: 065
  9. FLUOROURACIL. [Suspect]
     Active Substance: FLUOROURACIL
     Route: 042
     Dates: start: 20140409, end: 20140409
  10. ORADEXON [Concomitant]
     Active Substance: DEXAMETHASONE
     Indication: HER-2 POSITIVE BREAST CANCER
     Route: 042
     Dates: start: 20140409, end: 20140409
  11. SENDOXAN 1000 MG INJEKTIOKUIVA-AINE, LIUOSTA VARTEN [Suspect]
     Active Substance: CYCLOPHOSPHAMIDE
     Indication: HER-2 POSITIVE BREAST CANCER
     Route: 042
     Dates: start: 20120409
  12. EPIRUBICIN [Suspect]
     Active Substance: EPIRUBICIN
     Route: 042
     Dates: start: 20140409, end: 20140409
  13. DOCETAXEL [Suspect]
     Active Substance: DOCETAXEL
     Indication: HER-2 POSITIVE BREAST CANCER
     Dosage: X 3 AT THREE WEEK INTERVALS
     Route: 065

REACTIONS (4)
  - Pyrexia [Unknown]
  - Respiratory disorder [Fatal]
  - Malaise [Unknown]
  - Vomiting [Unknown]

NARRATIVE: CASE EVENT DATE: 20140409
